FAERS Safety Report 25252252 (Version 3)
Quarter: 2025Q2

REPORT INFORMATION
  Report Type: Report from Study
  Country: US (occurrence: US)
  Receive Date: 20250429
  Receipt Date: 20250612
  Transmission Date: 20250716
  Serious: Yes (Other)
  Sender: NOVARTIS
  Company Number: US-002147023-NVSC2025US066219

PATIENT
  Age: 20 Year
  Sex: Female
  Weight: 53.5 kg

DRUGS (3)
  1. LAMPRENE [Suspect]
     Active Substance: CLOFAZIMINE
     Indication: Mycobacterium abscessus infection
     Dosage: 100 MG, QD (2 TABLETS)
     Route: 048
     Dates: start: 20170115, end: 20220515
  2. TRIKAFTA [Concomitant]
     Active Substance: ELEXACAFTOR\IVACAFTOR\TEZACAFTOR
     Indication: Cystic fibrosis
     Dosage: UNK, BID (CF MODULATORY MEDICATION)
     Route: 065
     Dates: start: 2020
  3. TRIKAFTA [Concomitant]
     Active Substance: ELEXACAFTOR\IVACAFTOR\TEZACAFTOR
     Dosage: 2 PILLS IN MORNING (ELEXACAFTOR 100 MG, TEZACAFTOR 50 MG, IVACAFTOR 75 MG), 1 PILL AT NIGHT (IVACAFT
     Route: 065

REACTIONS (6)
  - Histiocytosis [Unknown]
  - Abdominal distension [Unknown]
  - Constipation [Unknown]
  - Abdominal pain upper [Unknown]
  - Granuloma [Unknown]
  - Infection [Unknown]

NARRATIVE: CASE EVENT DATE: 20240701
